FAERS Safety Report 8373159-1 (Version None)
Quarter: 2012Q2

REPORT INFORMATION
  Report Type: 
  Country: None (occurrence: None)
  Receive Date: 20120521
  Receipt Date: 20120514
  Transmission Date: 20120825
  Serious: Yes (Death, Hospitalization)
  Sender: FDA-Public Use
  Company Number: DE-SANOFI-AVENTIS-2011SA065604

PATIENT
  Age: 68 Year
  Sex: Male
  Weight: 59 kg

DRUGS (5)
  1. DOCETAXEL [Suspect]
     Indication: HEAD AND NECK CANCER
     Route: 042
  2. CARBOPLATIN [Concomitant]
     Indication: HEAD AND NECK CANCER
     Dates: start: 20110912, end: 20110912
  3. CISPLATIN [Suspect]
     Indication: HEAD AND NECK CANCER
     Route: 065
     Dates: start: 20110822
  4. FLUOROURACIL [Suspect]
     Indication: HEAD AND NECK CANCER
     Route: 065
     Dates: start: 20110822
  5. CETUXIMAB [Suspect]
     Indication: HEAD AND NECK CANCER
     Route: 065
     Dates: start: 20110822

REACTIONS (1)
  - GENERAL PHYSICAL HEALTH DETERIORATION [None]
